FAERS Safety Report 21158784 (Version 5)
Quarter: 2022Q3

REPORT INFORMATION
  Report Type: Report from Study
  Country: PR (occurrence: PR)
  Receive Date: 20220802
  Receipt Date: 20220914
  Transmission Date: 20221027
  Serious: Yes (Death, Life-Threatening, Hospitalization, Other)
  Sender: FDA-Public Use
  Company Number: PR-BRISTOL-MYERS SQUIBB COMPANY-2022-076701

PATIENT
  Age: 65 Year
  Sex: Male

DRUGS (19)
  1. AZACITIDINE [Suspect]
     Active Substance: AZACITIDINE
     Indication: Myelodysplastic syndrome
     Dosage: 7 DAYS WITHIN THE FIRST 9 CALENDAR DAYS OF EACH 28-DAY CYCLE (75 MG/M2,1 IN ?1 D)
     Route: 042
     Dates: start: 20220404, end: 20220706
  2. VENETOCLAX [Suspect]
     Active Substance: VENETOCLAX
     Indication: Myelodysplastic syndrome
     Dosage: DAYS 1 - 14 OF EACH 28-DAY CYCLE (400 MG,1 IN 1 D)
     Route: 048
     Dates: start: 20220404, end: 20220710
  3. FOLIC ACID [Concomitant]
     Active Substance: FOLIC ACID
     Indication: Nutritional supplementation
     Route: 048
     Dates: start: 2017
  4. CARAFATE [Concomitant]
     Active Substance: SUCRALFATE
     Indication: Gastrooesophageal reflux disease
     Dosage: 3 IN 1 D  1) 3 GM (1 GM,3 IN 1 D)
     Route: 048
     Dates: start: 20220407
  5. DAPTOMYCIN [Concomitant]
     Active Substance: DAPTOMYCIN
     Indication: Osteomyelitis
     Route: 042
     Dates: start: 20220422
  6. DAPTOMYCIN [Concomitant]
     Active Substance: DAPTOMYCIN
     Dosage: 1 TABLET 1 IN 1 D
     Route: 048
     Dates: start: 20220407
  7. FLUOXETINE [Concomitant]
     Active Substance: FLUOXETINE HYDROCHLORIDE
     Indication: Major depression
     Route: 048
     Dates: start: 2012
  8. LEVAQUIN [Concomitant]
     Active Substance: LEVOFLOXACIN
     Indication: Localised infection
     Dosage: 1 IN 1 D
     Route: 048
     Dates: start: 20220427
  9. LEVAQUIN [Concomitant]
     Active Substance: LEVOFLOXACIN
     Dosage: 1 TABLET 1 IN 1 D
     Route: 048
     Dates: start: 20220407
  10. MEROPENEM [Concomitant]
     Active Substance: MEROPENEM
     Indication: Osteomyelitis
     Dosage: 3 GM (1 GM,1 IN 8 HR)
     Route: 042
     Dates: start: 20220422
  11. NEURIN [CYANOCOBALAMIN;PYRIDOXINE HYDROCHLORIDE;THIAMINE HYDROCHLORIDE [Concomitant]
     Indication: Nutritional supplementation
     Dosage: 1 IN 1 D
     Route: 048
     Dates: start: 2017
  12. ZOFRAN [Concomitant]
     Active Substance: ONDANSETRON HYDROCHLORIDE
     Indication: Prophylaxis
     Dosage: 1 IN 1 D
     Route: 042
     Dates: start: 20220404
  13. PEPCID [ALUMINIUM HYDROXIDE;MAGNESIUM TRISILICATE;SODIUM ALGINATE] [Concomitant]
     Indication: Prophylaxis
     Dosage: 1 IN 1 D
     Route: 042
     Dates: start: 20220404
  14. ACRIVASTINE [Concomitant]
     Active Substance: ACRIVASTINE
     Indication: Prophylaxis
     Dosage: 1 IN 1 D
     Route: 042
     Dates: start: 20220404
  15. SUCRALFATE [Concomitant]
     Active Substance: SUCRALFATE
     Indication: Probiotic therapy
     Dosage: 1 TABLET (1 TABLET,1 IN 1 D)
     Route: 048
     Dates: start: 20220407
  16. UGMENTIN [AMOXICILLIN SODIUM;CLAVULANATE POTASSIUM] [Concomitant]
     Indication: Localised infection
     Dosage: 875/125 MG (1 IN 12 HR)
     Route: 048
     Dates: start: 20220427
  17. UGMENTIN [AMOXICILLIN SODIUM;CLAVULANATE POTASSIUM] [Concomitant]
     Dosage: 1 TABLET (1 TABLET,1 IN 1 D)
     Route: 048
     Dates: start: 20220407
  18. DOXYCYCLINE [Concomitant]
     Active Substance: DOXYCYCLINE
     Indication: Osteomyelitis
     Dosage: 200 MG (100 MG,1 IN 12 HR)
     Route: 042
     Dates: start: 20220302
  19. DOXYCYCLINE [Concomitant]
     Active Substance: DOXYCYCLINE
     Dosage: 1 TABLET 1 IN 1 D
     Route: 048
     Dates: start: 20220407

REACTIONS (3)
  - Septic shock [Fatal]
  - Febrile neutropenia [Unknown]
  - Sepsis [Unknown]

NARRATIVE: CASE EVENT DATE: 20220711
